FAERS Safety Report 19924080 (Version 2)
Quarter: 2022Q1

REPORT INFORMATION
  Report Type: Spontaneous
  Country: US (occurrence: US)
  Receive Date: 20211006
  Receipt Date: 20220310
  Transmission Date: 20220423
  Serious: No
  Sender: FDA-Public Use
  Company Number: US-PFIZER INC-202101153563

PATIENT
  Age: 55 Year
  Sex: Female

DRUGS (2)
  1. XELJANZ XR [Suspect]
     Active Substance: TOFACITINIB CITRATE
     Indication: Rheumatoid arthritis
     Dosage: 11 MG, 1X/DAY
     Route: 048
     Dates: start: 20210829
  2. IBUPROFEN SODIUM [Concomitant]
     Active Substance: IBUPROFEN SODIUM
     Dosage: UNK

REACTIONS (6)
  - Product dose omission in error [Unknown]
  - Arthralgia [Recovering/Resolving]
  - Discouragement [Recovering/Resolving]
  - Depression [Recovering/Resolving]
  - Inflammation [Unknown]
  - Pain [Unknown]

NARRATIVE: CASE EVENT DATE: 20210101
